FAERS Safety Report 13452043 (Version 1)
Quarter: 2017Q2

REPORT INFORMATION
  Report Type: Spontaneous
  Country: US (occurrence: US)
  Receive Date: 20170418
  Receipt Date: 20170418
  Transmission Date: 20170830
  Serious: Yes (Other)
  Sender: FDA-Public Use
  Company Number: US-UNITED THERAPEUTICS-UNT-2017-005325

PATIENT
  Sex: Female
  Weight: 63.49 kg

DRUGS (4)
  1. ADCIRCA [Concomitant]
     Active Substance: TADALAFIL
     Indication: PRODUCT USED FOR UNKNOWN INDICATION
  2. COUMADIN [Concomitant]
     Active Substance: WARFARIN SODIUM
     Indication: PRODUCT USED FOR UNKNOWN INDICATION
  3. REMODULIN [Suspect]
     Active Substance: TREPROSTINIL
     Indication: PULMONARY ARTERIAL HYPERTENSION
     Dosage: 0.106 ?G/KG, CONTINUING
     Route: 041
     Dates: start: 20060301
  4. OPSUMIT [Concomitant]
     Active Substance: MACITENTAN
     Indication: PRODUCT USED FOR UNKNOWN INDICATION

REACTIONS (11)
  - Loss of consciousness [Unknown]
  - Nausea [Unknown]
  - Visual impairment [Unknown]
  - Dizziness [Unknown]
  - Device alarm issue [Unknown]
  - Headache [Unknown]
  - Asthenia [Unknown]
  - Device issue [Unknown]
  - Dyspnoea [Unknown]
  - Muscular weakness [Unknown]
  - Migraine [Unknown]
